FAERS Safety Report 7770285-2 (Version None)
Quarter: 2011Q3

REPORT INFORMATION
  Report Type: 
  Country: None (occurrence: None)
  Receive Date: 20110922
  Receipt Date: 20110110
  Transmission Date: 20111222
  Serious: No
  Sender: FDA-Public Use
  Company Number: US-ASTRAZENECA-2010SE12897

PATIENT
  Age: 57 Year
  Sex: Male

DRUGS (2)
  1. SEROQUEL [Suspect]
     Indication: SLEEP DISORDER
     Route: 048
  2. SEROQUEL [Suspect]
     Dosage: ONE TO TWO TABLETS AT NIGHT
     Route: 048

REACTIONS (4)
  - INSOMNIA [None]
  - NASAL CONGESTION [None]
  - DRUG DOSE OMISSION [None]
  - MEMORY IMPAIRMENT [None]
